FAERS Safety Report 8783209 (Version 5)
Quarter: 2013Q3

REPORT INFORMATION
  Report Type: Spontaneous
  Country: US (occurrence: US)
  Receive Date: 20120913
  Receipt Date: 20130710
  Transmission Date: 20140515
  Serious: Yes (Hospitalization, Other)
  Sender: FDA-Public Use
  Company Number: US-009507513-1209USA001510

PATIENT
  Sex: Female
  Weight: 55.78 kg

DRUGS (7)
  1. FOSAMAX [Suspect]
     Indication: PROPHYLAXIS
     Dosage: 70 MG, QW
     Route: 048
     Dates: end: 200507
  2. FOSAMAX [Suspect]
     Indication: OSTEOPOROSIS
  3. ALENDRONATE SODIUM [Suspect]
     Indication: OSTEOPOROSIS
     Dosage: 35 MG, QW
     Route: 048
     Dates: start: 201008
  4. ACTONEL [Concomitant]
     Indication: OSTEOPOROSIS
     Dosage: 35 MG, QW
     Route: 048
     Dates: start: 200506, end: 201008
  5. LOVASTATIN [Concomitant]
     Indication: BLOOD CHOLESTEROL INCREASED
     Dosage: UNK
     Dates: start: 1990
  6. ASCORBIC ACID [Concomitant]
     Dosage: 1000 MG, QD
     Dates: start: 1990
  7. VITAMIN E [Concomitant]
     Dosage: 1000 MG, QD
     Dates: start: 1990

REACTIONS (9)
  - Femur fracture [Unknown]
  - Breast cancer female [Unknown]
  - Surgery [Unknown]
  - Adverse event [Unknown]
  - Hypertension [Unknown]
  - Asthma [Unknown]
  - Heart rate irregular [Unknown]
  - Rectal prolapse [Unknown]
  - Phlebolith [Unknown]
